FAERS Safety Report 5832591-8 (Version None)
Quarter: 2008Q3

REPORT INFORMATION
  Report Type: 
  Country: None (occurrence: None)
  Receive Date: 20080804
  Receipt Date: 20080723
  Transmission Date: 20090109
  Serious: Yes (Other)
  Sender: FDA-Public Use
  Company Number: PHHY2008JP15196

PATIENT
  Sex: Female

DRUGS (7)
  1. COMTAN [Suspect]
     Dosage: 100 MG, TID
     Route: 048
     Dates: start: 20080709, end: 20080711
  2. LEVODOPA BENSERAZIDE HYDROCHLO [Suspect]
     Dosage: 300 MG
     Route: 048
     Dates: start: 20080610, end: 20080711
  3. FP [Concomitant]
     Indication: PARKINSON'S DISEASE
     Dosage: 7.5 MG
     Route: 048
     Dates: start: 20061221
  4. GASMOTIN [Concomitant]
     Dosage: 15 MG
     Route: 048
     Dates: start: 20080709
  5. PURSENNID [Concomitant]
     Dosage: 24 MG
     Route: 048
     Dates: start: 20080709
  6. ALOSENN [Concomitant]
     Dosage: 1 MG
     Dates: start: 20080709
  7. BLOPRESS [Concomitant]
     Dosage: 8 MG
     Route: 048
     Dates: start: 20080709

REACTIONS (2)
  - BLOOD ALKALINE PHOSPHATASE INCREASED [None]
  - HALLUCINATION [None]
